FAERS Safety Report 16305492 (Version 2)
Quarter: 2020Q4

REPORT INFORMATION
  Report Type: Spontaneous
  Country: US (occurrence: US)
  Receive Date: 20190513
  Receipt Date: 20201224
  Transmission Date: 20210113
  Serious: Yes (Hospitalization, Other)
  Sender: FDA-Public Use
  Company Number: US-ASTRAZENECA-2019SE66058

PATIENT
  Age: 27025 Day
  Sex: Male
  Weight: 83.9 kg

DRUGS (45)
  1. NEXIUM [Suspect]
     Active Substance: ESOMEPRAZOLE MAGNESIUM
     Indication: GASTROOESOPHAGEAL REFLUX DISEASE
     Dosage: GENERIC
     Route: 048
     Dates: start: 20160101, end: 2017
  2. ASPIRIN. [Concomitant]
     Active Substance: ASPIRIN
     Dates: start: 2014
  3. VITAMIN B12 [Concomitant]
     Active Substance: CYANOCOBALAMIN
     Dates: start: 2019
  4. SODIUM BICARBONATE. [Concomitant]
     Active Substance: SODIUM BICARBONATE
  5. VELCADE [Concomitant]
     Active Substance: BORTEZOMIB
  6. DULCOLAX NOS [Concomitant]
     Active Substance: BISACODYL OR DOCUSATE SODIUM
  7. NIZATIDINE. [Concomitant]
     Active Substance: NIZATIDINE
  8. GUAIFENESIN. [Concomitant]
     Active Substance: GUAIFENESIN
  9. LEVAQUIN [Concomitant]
     Active Substance: LEVOFLOXACIN
  10. NEXIUM 24HR [Suspect]
     Active Substance: ESOMEPRAZOLE MAGNESIUM
     Indication: GASTROOESOPHAGEAL REFLUX DISEASE
     Route: 048
     Dates: start: 200409, end: 201612
  11. REVLIMID [Concomitant]
     Active Substance: LENALIDOMIDE
  12. GABAPENTIN. [Concomitant]
     Active Substance: GABAPENTIN
  13. ACYCLOVIR. [Concomitant]
     Active Substance: ACYCLOVIR
  14. ATENOLOL. [Concomitant]
     Active Substance: ATENOLOL
  15. METAXALONE. [Concomitant]
     Active Substance: METAXALONE
  16. PANTOPRAZOLE [Suspect]
     Active Substance: PANTOPRAZOLE
     Indication: GASTROOESOPHAGEAL REFLUX DISEASE
     Route: 065
     Dates: start: 20140618, end: 20140718
  17. CELEBREX [Concomitant]
     Active Substance: CELECOXIB
     Indication: ARTHRITIS
  18. AMOXICILLIN. [Concomitant]
     Active Substance: AMOXICILLIN
     Indication: INFECTION
  19. XANAX [Concomitant]
     Active Substance: ALPRAZOLAM
  20. DEXAMETHASONE. [Concomitant]
     Active Substance: DEXAMETHASONE
  21. COLCHICINE. [Concomitant]
     Active Substance: COLCHICINE
  22. AZITHROMYCIN ANHYDROUS. [Concomitant]
     Active Substance: AZITHROMYCIN ANHYDROUS
     Indication: INFECTION
  23. SULFAMETHOXAZOLE [Concomitant]
     Active Substance: SULFAMETHOXAZOLE
     Indication: INFECTION
  24. CALCIUM [Concomitant]
     Active Substance: CALCIUM
     Dates: start: 2014
  25. PREDNISONE. [Concomitant]
     Active Substance: PREDNISONE
  26. NEXIUM [Suspect]
     Active Substance: ESOMEPRAZOLE MAGNESIUM
     Indication: GASTROOESOPHAGEAL REFLUX DISEASE
     Route: 048
     Dates: start: 200409, end: 201612
  27. NEXIUM [Suspect]
     Active Substance: ESOMEPRAZOLE MAGNESIUM
     Indication: GASTROOESOPHAGEAL REFLUX DISEASE
     Route: 048
     Dates: start: 2008, end: 20151231
  28. NEXIUM [Suspect]
     Active Substance: ESOMEPRAZOLE MAGNESIUM
     Indication: GASTROOESOPHAGEAL REFLUX DISEASE
     Route: 048
     Dates: start: 20160311
  29. NEXIUM 24HR [Suspect]
     Active Substance: ESOMEPRAZOLE MAGNESIUM
     Indication: GASTROOESOPHAGEAL REFLUX DISEASE
     Route: 048
     Dates: start: 20140301
  30. ZOMETA [Concomitant]
     Active Substance: ZOLEDRONIC ACID
  31. LEVOFLOXACIN. [Concomitant]
     Active Substance: LEVOFLOXACIN
     Indication: INFECTION
  32. VITAMIN D [Concomitant]
     Active Substance: VITAMIN D NOS
     Dates: start: 2014
  33. ALLOPURINOL. [Concomitant]
     Active Substance: ALLOPURINOL
  34. NITROFURANTOIN. [Concomitant]
     Active Substance: NITROFURANTOIN
  35. PROCTOFOAM [Concomitant]
     Active Substance: PRAMOXINE HYDROCHLORIDE
  36. TRAMADOL. [Concomitant]
     Active Substance: TRAMADOL
     Indication: PAIN
  37. MELOXICAM. [Concomitant]
     Active Substance: MELOXICAM
     Indication: ARTHRITIS
  38. ZANTAC 150 (RANITIDINE HYDROCHLORIDE) [Concomitant]
     Active Substance: RANITIDINE HYDROCHLORIDE
  39. VITAMIN D [Concomitant]
     Active Substance: VITAMIN D NOS
  40. AMLODIPINE [Concomitant]
     Active Substance: AMLODIPINE BESYLATE
  41. KLONOPIN [Concomitant]
     Active Substance: CLONAZEPAM
  42. INDOMETHACIN. [Concomitant]
     Active Substance: INDOMETHACIN
     Indication: ARTHRITIS
  43. IRON [Concomitant]
     Active Substance: IRON
     Dates: start: 2019
  44. TURMERIC [Concomitant]
     Active Substance: HERBALS\TURMERIC
     Dates: start: 2019
  45. SERTRALINE [Concomitant]
     Active Substance: SERTRALINE HYDROCHLORIDE

REACTIONS (6)
  - Renal tubular necrosis [Unknown]
  - Gastrooesophageal reflux disease [Not Recovered/Not Resolved]
  - Renal failure [Unknown]
  - Chronic kidney disease [Not Recovered/Not Resolved]
  - Acute kidney injury [Not Recovered/Not Resolved]
  - Tubulointerstitial nephritis [Unknown]

NARRATIVE: CASE EVENT DATE: 20140618
